FAERS Safety Report 12852994 (Version 1)
Quarter: 2016Q4

REPORT INFORMATION
  Report Type: Spontaneous
  Country: US (occurrence: US)
  Receive Date: 20161017
  Receipt Date: 20161017
  Transmission Date: 20170207
  Serious: No
  Sender: FDA-Public Use
  Company Number: US-JAZZ-2016-US-013965

PATIENT
  Sex: Female

DRUGS (23)
  1. XYREM [Suspect]
     Active Substance: SODIUM OXYBATE
     Dosage: DOSE ADJUSTMENTS
     Route: 048
     Dates: start: 200711, end: 201208
  2. XYREM [Suspect]
     Active Substance: SODIUM OXYBATE
     Dosage: 5.5 G, TID
     Route: 048
     Dates: start: 201208
  3. BOOST CALORIE SMART [Concomitant]
  4. LOVENOX [Concomitant]
     Active Substance: ENOXAPARIN SODIUM
  5. MIRALAX [Concomitant]
     Active Substance: POLYETHYLENE GLYCOL 3350
  6. AMBIEN [Concomitant]
     Active Substance: ZOLPIDEM TARTRATE
  7. AMLODIPINE BESYLATE. [Concomitant]
     Active Substance: AMLODIPINE BESYLATE
  8. ZOFRAN [Concomitant]
     Active Substance: ONDANSETRON HYDROCHLORIDE
  9. METHADONE HCL [Concomitant]
     Active Substance: METHADONE HYDROCHLORIDE
  10. DURAGESIC [Concomitant]
     Active Substance: FENTANYL
  11. PERCOCET [Concomitant]
     Active Substance: ACETAMINOPHEN\OXYCODONE HYDROCHLORIDE
  12. LISINOPRIL. [Concomitant]
     Active Substance: LISINOPRIL
  13. REMERON [Concomitant]
     Active Substance: MIRTAZAPINE
  14. PRILOSEC [Concomitant]
     Active Substance: OMEPRAZOLE MAGNESIUM
  15. XANAX [Concomitant]
     Active Substance: ALPRAZOLAM
  16. XYREM [Suspect]
     Active Substance: SODIUM OXYBATE
     Indication: NARCOLEPSY
     Dosage: 4.5 G, BID
     Route: 048
     Dates: start: 200709, end: 200711
  17. AMITIZA [Concomitant]
     Active Substance: LUBIPROSTONE
  18. LIBRAX [Concomitant]
     Active Substance: CHLORDIAZEPOXIDE HYDROCHLORIDE\CLIDINIUM BROMIDE
  19. NEXIUM [Concomitant]
     Active Substance: ESOMEPRAZOLE MAGNESIUM
  20. WARFARIN SODIUM. [Suspect]
     Active Substance: WARFARIN SODIUM
     Indication: PRODUCT USED FOR UNKNOWN INDICATION
     Dosage: UNK
     Dates: start: 20151116
  21. ZOLOFT [Concomitant]
     Active Substance: SERTRALINE HYDROCHLORIDE
  22. MULTIVITAMIN [Concomitant]
     Active Substance: VITAMINS
  23. LIPITOR [Concomitant]
     Active Substance: ATORVASTATIN CALCIUM

REACTIONS (2)
  - Decreased appetite [Unknown]
  - Malaise [Unknown]
